FAERS Safety Report 10353693 (Version 1)
Quarter: 2014Q3

REPORT INFORMATION
  Report Type: Spontaneous
  Country: US (occurrence: None)
  Receive Date: 20140729
  Receipt Date: 20140729
  Transmission Date: 20150326
  Serious: No
  Sender: FDA-Public Use
  Company Number: None

PATIENT
  Age: 77 Year
  Sex: Female
  Weight: 60 kg

DRUGS (3)
  1. RIVAROXABAN 15MG [Suspect]
     Active Substance: RIVAROXABAN
     Indication: CARDIAC ABLATION
     Dosage: 1 TABLET
     Route: 048
     Dates: start: 20140714, end: 20140726
  2. RIVAROXABAN 15MG [Suspect]
     Active Substance: RIVAROXABAN
     Indication: POSTOPERATIVE CARE
     Dosage: 1 TABLET
     Route: 048
     Dates: start: 20140714, end: 20140726
  3. RIVAROXABAN 15MG [Suspect]
     Active Substance: RIVAROXABAN
     Indication: ATRIAL FLUTTER
     Dosage: 1 TABLET
     Route: 048
     Dates: start: 20140714, end: 20140726

REACTIONS (1)
  - Spinal haematoma [None]

NARRATIVE: CASE EVENT DATE: 20140726
